FAERS Safety Report 8949902 (Version 3)
Quarter: 2013Q1

REPORT INFORMATION
  Report Type: Report from Study
  Country: CH (occurrence: CH)
  Receive Date: 20121205
  Receipt Date: 20130109
  Transmission Date: 20140127
  Serious: Yes (Hospitalization)
  Sender: FDA-Public Use
  Company Number: CH-ROCHE-1159617

PATIENT
  Sex: Male
  Weight: 74 kg

DRUGS (6)
  1. PEG-INTERFERON ALFA 2A [Suspect]
     Indication: CHRONIC HEPATITIS C
     Route: 065
     Dates: start: 20121108
  2. RIBAVIRIN [Suspect]
     Indication: CHRONIC HEPATITIS C
     Route: 065
     Dates: start: 20121108
  3. BLINDED TMC435 (NS3/4A PROTEASE INHIBITOR) [Suspect]
     Indication: CHRONIC HEPATITIS C
     Route: 065
     Dates: start: 20121108
  4. TELAPREVIR [Suspect]
     Indication: CHRONIC HEPATITIS C
     Route: 065
     Dates: start: 20121108
  5. CIPRALEX [Concomitant]
     Route: 065
  6. INDERAL [Concomitant]
     Route: 065

REACTIONS (20)
  - Oesophageal varices haemorrhage [Recovered/Resolved]
  - Prothrombin time prolonged [None]
  - International normalised ratio increased [None]
  - Activated partial thromboplastin time prolonged [None]
  - Alanine aminotransferase increased [None]
  - Gamma-glutamyltransferase increased [None]
  - Blood alkaline phosphatase increased [None]
  - Blood glucose increased [None]
  - Haemoglobin decreased [None]
  - Haematocrit decreased [None]
  - Blood pH increased [None]
  - PCO2 decreased [None]
  - PO2 decreased [None]
  - Blood calcium decreased [None]
  - QRS axis abnormal [None]
  - Electrocardiogram T wave inversion [None]
  - Diarrhoea [None]
  - General physical health deterioration [None]
  - Oesophageal ulcer [None]
  - Portal hypertensive gastropathy [None]
